FAERS Safety Report 25131431 (Version 1)
Quarter: 2025Q1

REPORT INFORMATION
  Report Type: Spontaneous
  Country: IT (occurrence: IT)
  Receive Date: 20250327
  Receipt Date: 20250327
  Transmission Date: 20250408
  Serious: Yes (Life-Threatening, Other)
  Sender: MYLAN
  Company Number: None

PATIENT
  Age: 60 Year
  Sex: Female

DRUGS (12)
  1. PREGABALIN [Suspect]
     Active Substance: PREGABALIN
     Indication: Product used for unknown indication
     Dosage: 1500 MILLIGRAM, QD (75 MG 20 CP)
     Dates: start: 20250314, end: 20250314
  2. PREGABALIN [Suspect]
     Active Substance: PREGABALIN
     Dosage: 1500 MILLIGRAM, QD (75 MG 20 CP)
     Route: 048
     Dates: start: 20250314, end: 20250314
  3. PREGABALIN [Suspect]
     Active Substance: PREGABALIN
     Dosage: 1500 MILLIGRAM, QD (75 MG 20 CP)
     Route: 048
     Dates: start: 20250314, end: 20250314
  4. PREGABALIN [Suspect]
     Active Substance: PREGABALIN
     Dosage: 1500 MILLIGRAM, QD (75 MG 20 CP)
     Dates: start: 20250314, end: 20250314
  5. HYDROCHLOROTHIAZIDE\RAMIPRIL [Suspect]
     Active Substance: HYDROCHLOROTHIAZIDE\RAMIPRIL
     Indication: Product used for unknown indication
     Dosage: 210 MILLIGRAM, QD (5/25 MG 7 CP)
     Dates: start: 20250314, end: 20250314
  6. HYDROCHLOROTHIAZIDE\RAMIPRIL [Suspect]
     Active Substance: HYDROCHLOROTHIAZIDE\RAMIPRIL
     Dosage: 210 MILLIGRAM, QD (5/25 MG 7 CP)
     Route: 048
     Dates: start: 20250314, end: 20250314
  7. HYDROCHLOROTHIAZIDE\RAMIPRIL [Suspect]
     Active Substance: HYDROCHLOROTHIAZIDE\RAMIPRIL
     Dosage: 210 MILLIGRAM, QD (5/25 MG 7 CP)
     Route: 048
     Dates: start: 20250314, end: 20250314
  8. HYDROCHLOROTHIAZIDE\RAMIPRIL [Suspect]
     Active Substance: HYDROCHLOROTHIAZIDE\RAMIPRIL
     Dosage: 210 MILLIGRAM, QD (5/25 MG 7 CP)
     Dates: start: 20250314, end: 20250314
  9. DIAZEPAM [Suspect]
     Active Substance: DIAZEPAM
     Indication: Product used for unknown indication
     Dosage: 100 MILLIGRAM, QD (20 TABLET OF 5 MG)
     Dates: start: 20250314, end: 20250314
  10. DIAZEPAM [Suspect]
     Active Substance: DIAZEPAM
     Dosage: 100 MILLIGRAM, QD (20 TABLET OF 5 MG)
     Route: 048
     Dates: start: 20250314, end: 20250314
  11. DIAZEPAM [Suspect]
     Active Substance: DIAZEPAM
     Dosage: 100 MILLIGRAM, QD (20 TABLET OF 5 MG)
     Route: 048
     Dates: start: 20250314, end: 20250314
  12. DIAZEPAM [Suspect]
     Active Substance: DIAZEPAM
     Dosage: 100 MILLIGRAM, QD (20 TABLET OF 5 MG)
     Dates: start: 20250314, end: 20250314

REACTIONS (5)
  - Drug abuse [Recovered/Resolved]
  - Intentional self-injury [Recovered/Resolved]
  - Sopor [Recovered/Resolved]
  - Cognitive disorder [Recovered/Resolved]
  - Agitation [Recovered/Resolved]

NARRATIVE: CASE EVENT DATE: 20250314
